FAERS Safety Report 15855842 (Version 1)
Quarter: 2019Q1

REPORT INFORMATION
  Report Type: Spontaneous
  Country: US (occurrence: US)
  Receive Date: 20190122
  Receipt Date: 20190122
  Transmission Date: 20190417
  Serious: Yes (Other)
  Sender: FDA-Public Use
  Company Number: US-TEIKOKU PHARMA USA-TPU2019-00031

PATIENT
  Sex: Female
  Weight: 104.42 kg

DRUGS (14)
  1. LIDOCAINE PATCH [Suspect]
     Active Substance: LIDOCAINE
     Route: 061
  2. ABILIFY [Concomitant]
     Active Substance: ARIPIPRAZOLE
  3. LIDOCAINE PATCH [Suspect]
     Active Substance: LIDOCAINE
  4. HYDROCODONE BITARTRATE AND ACETAMINOPHEN [Concomitant]
     Active Substance: ACETAMINOPHEN\HYDROCODONE BITARTRATE
     Indication: PAIN
  5. FUROSEMIDE. [Concomitant]
     Active Substance: FUROSEMIDE
     Indication: HYPERTENSION
  6. MELOXICAM. [Concomitant]
     Active Substance: MELOXICAM
     Indication: INFLAMMATION
  7. POTASSIUM [Concomitant]
     Active Substance: POTASSIUM
  8. TRAMADOL HCL [Concomitant]
     Active Substance: TRAMADOL HYDROCHLORIDE
     Indication: PAIN
  9. CHLORTHALIDONE. [Concomitant]
     Active Substance: CHLORTHALIDONE
  10. LIDOCAINE PATCH [Suspect]
     Active Substance: LIDOCAINE
     Indication: FIBROMYALGIA
     Route: 061
  11. LIDOCAINE PATCH [Suspect]
     Active Substance: LIDOCAINE
     Dates: start: 201812
  12. HYDROCODONE BITARTRATE AND ACETAMINOPHEN [Concomitant]
     Active Substance: ACETAMINOPHEN\HYDROCODONE BITARTRATE
     Indication: FIBROMYALGIA
     Dosage: 10/325 MG
  13. CYMBALTA [Concomitant]
     Active Substance: DULOXETINE HYDROCHLORIDE
     Indication: DEPRESSION
  14. DEXILANT [Concomitant]
     Active Substance: DEXLANSOPRAZOLE

REACTIONS (8)
  - Pain [Unknown]
  - Sedation [Not Recovered/Not Resolved]
  - Weight decreased [Unknown]
  - Mobility decreased [Unknown]
  - Pain in extremity [Unknown]
  - Bipolar I disorder [Unknown]
  - Overdose [Unknown]
  - Knee operation [Unknown]
